FAERS Safety Report 7229069-6 (Version None)
Quarter: 2011Q1

REPORT INFORMATION
  Report Type: 
  Country: None (occurrence: None)
  Receive Date: 20110117
  Receipt Date: 20110113
  Transmission Date: 20110831
  Serious: Yes (Death)
  Sender: FDA-Public Use
  Company Number: PHHY2011DE02603

PATIENT
  Sex: Female

DRUGS (3)
  1. LEPONEX [Suspect]
     Dosage: 500 MG, QD
     Route: 048
  2. LEPONEX [Suspect]
     Indication: SCHIZOAFFECTIVE DISORDER
     Dosage: UNK
     Route: 048
  3. LEPONEX [Suspect]
     Dosage: 800 MG, QD
     Route: 048

REACTIONS (2)
  - DEATH [None]
  - ANTIPSYCHOTIC DRUG LEVEL INCREASED [None]
